FAERS Safety Report 7555537-3 (Version None)
Quarter: 2011Q2

REPORT INFORMATION
  Report Type: 
  Country: None (occurrence: None)
  Receive Date: 20110617
  Receipt Date: 20050112
  Transmission Date: 20111010
  Serious: Yes (Hospitalization, Other)
  Sender: FDA-Public Use
  Company Number: PHHO2005CO00878

PATIENT
  Sex: Male

DRUGS (4)
  1. STARLIX [Suspect]
     Indication: DIABETES MELLITUS
     Dosage: 3 DF, DAILY
     Route: 048
     Dates: start: 20010601
  2. ANTIVERT [Concomitant]
  3. PLAVIX [Concomitant]
  4. DIAMOX [Concomitant]

REACTIONS (5)
  - MEMORY IMPAIRMENT [None]
  - SPINAL COMPRESSION FRACTURE [None]
  - INJURY [None]
  - ROAD TRAFFIC ACCIDENT [None]
  - DIZZINESS [None]
